FAERS Safety Report 23821923 (Version 1)
Quarter: 2024Q2

REPORT INFORMATION
  Report Type: Spontaneous
  Country: US (occurrence: US)
  Receive Date: 20240506
  Receipt Date: 20240506
  Transmission Date: 20240716
  Serious: Yes (Other)
  Sender: FDA-Public Use
  Company Number: US-NOVOPROD-1199576

PATIENT
  Sex: Male

DRUGS (1)
  1. LEVEMIR [Suspect]
     Active Substance: INSULIN DETEMIR
     Indication: Product used for unknown indication
     Dosage: 10 U IN EVENING, 10 U AT NIGHT
     Route: 058

REACTIONS (3)
  - Cardiac operation [Unknown]
  - Lower limb fracture [Unknown]
  - Fatigue [Unknown]
